FAERS Safety Report 9547706 (Version 2)
Quarter: 2014Q1

REPORT INFORMATION
  Report Type: Spontaneous
  Country: US (occurrence: None)
  Receive Date: 20130524
  Receipt Date: 20130724
  Transmission Date: 20141002
  Serious: No
  Sender: FDA-Public Use
  Company Number: PHEH2013US004757

PATIENT
  Age: 42 Year
  Sex: Female
  Weight: 114.7 kg

DRUGS (4)
  1. GILENYA (FINGOLIMOD) CAPSULE, 0.5 MG [Suspect]
     Indication: MULTIPLE SCLEROSIS
     Route: 048
     Dates: start: 20130213
  2. AMLODIPINE [Concomitant]
  3. RANITIDINE [Concomitant]
  4. LISINOPRIL [Concomitant]

REACTIONS (3)
  - Influenza like illness [None]
  - Fatigue [None]
  - Nasopharyngitis [None]
